FAERS Safety Report 14190491 (Version 2)
Quarter: 2017Q4

REPORT INFORMATION
  Report Type: Report from Study
  Country: US (occurrence: US)
  Receive Date: 20171115
  Receipt Date: 20171130
  Transmission Date: 20180321
  Serious: Yes (Death, Other)
  Sender: FDA-Public Use
  Company Number: US-AMGEN-USASL2017170117

PATIENT
  Age: 94 Year
  Sex: Female
  Weight: 52.61 kg

DRUGS (9)
  1. LASIX [Concomitant]
     Active Substance: FUROSEMIDE
     Dosage: 20 MG, UNK
     Route: 048
     Dates: start: 20140528
  2. PROLIA [Suspect]
     Active Substance: DENOSUMAB
     Dosage: 60 MG, Q6MO
     Route: 058
     Dates: start: 20151217
  3. TENEX [Concomitant]
     Active Substance: GUANFACINE HYDROCHLORIDE
     Dosage: UNK UNK, QD
     Route: 048
     Dates: start: 20140528
  4. PROBENECID. [Concomitant]
     Active Substance: PROBENECID
     Dosage: 500 MG,0.5 TABLET, BID
     Route: 048
     Dates: start: 20140528
  5. COLCHICINE. [Concomitant]
     Active Substance: COLCHICINE
     Dosage: 0.6 MG, QD
     Route: 048
     Dates: start: 20140528
  6. PROLIA [Suspect]
     Active Substance: DENOSUMAB
     Dosage: 60 MG, Q6MO
     Route: 058
     Dates: start: 20150618
  7. LOSARTAN. [Concomitant]
     Active Substance: LOSARTAN
     Dosage: 50 MG, QD
     Route: 048
     Dates: start: 20140528
  8. PROLIA [Suspect]
     Active Substance: DENOSUMAB
     Indication: OSTEOPOROSIS
     Dosage: 60 MG, Q6MO
     Route: 058
     Dates: start: 2013
  9. PREDNISONE. [Concomitant]
     Active Substance: PREDNISONE
     Dosage: 7 MG, QD
     Dates: start: 20140528

REACTIONS (1)
  - Death [Fatal]

NARRATIVE: CASE EVENT DATE: 20160520
